FAERS Safety Report 7961821-1 (Version None)
Quarter: 2011Q4

REPORT INFORMATION
  Report Type: 
  Country: None (occurrence: None)
  Receive Date: 20111207
  Receipt Date: 20111207
  Transmission Date: 20120403
  Serious: Yes (Other)
  Sender: FDA-Public Use
  Company Number: None

PATIENT
  Age: 56 Year
  Sex: Female
  Weight: 58.967 kg

DRUGS (1)
  1. BONIVA [Suspect]
     Indication: OSTEOPENIA
     Dosage: 150 MG TABLET
     Route: 048
     Dates: start: 20091201, end: 20100401

REACTIONS (3)
  - PERIARTHRITIS [None]
  - FEELING ABNORMAL [None]
  - PAIN IN EXTREMITY [None]
